FAERS Safety Report 14621091 (Version 1)
Quarter: 2018Q1

REPORT INFORMATION
  Report Type: Spontaneous
  Country: GB (occurrence: GB)
  Receive Date: 20180310
  Receipt Date: 20180310
  Transmission Date: 20180509
  Serious: Yes (Other)
  Sender: FDA-Public Use
  Company Number: GB-AUROBINDO-AUR-APL-2018-012315

PATIENT
  Age: 53 Year
  Sex: Female
  Weight: 72.57 kg

DRUGS (5)
  1. RAMIPRIL. [Suspect]
     Active Substance: RAMIPRIL
     Indication: HYPERTENSION
     Dosage: 50 MILLIGRAM
     Route: 048
     Dates: start: 20180105, end: 20180201
  2. TEGRETOL [Concomitant]
     Active Substance: CARBAMAZEPINE
     Dosage: ()
  3. GABAPENTIN. [Concomitant]
     Active Substance: GABAPENTIN
     Dosage: ()
  4. TEGRETOL XR [Concomitant]
     Active Substance: CARBAMAZEPINE
     Dosage: ()
  5. MEBEVERINE [Concomitant]
     Active Substance: MEBEVERINE
     Dosage: ()

REACTIONS (5)
  - Abdominal distension [Recovered/Resolved]
  - Malaise [Recovered/Resolved]
  - Urine flow decreased [Recovered/Resolved]
  - Chromaturia [Recovered/Resolved]
  - Joint swelling [Recovered/Resolved]

NARRATIVE: CASE EVENT DATE: 20180105
